FAERS Safety Report 6310086-5 (Version None)
Quarter: 2009Q3

REPORT INFORMATION
  Report Type: 
  Country: None (occurrence: None)
  Receive Date: 20090814
  Receipt Date: 20090807
  Transmission Date: 20100115
  Serious: Yes (Other)
  Sender: FDA-Public Use
  Company Number: US-BAYER-200911411BCC

PATIENT
  Age: 66 Year
  Sex: Male
  Weight: 50 kg

DRUGS (2)
  1. ALEVE (CAPLET) [Suspect]
     Indication: HEADACHE
     Dosage: TOTAL DAILY DOSE: 220 MG  UNIT DOSE: 220 MG
     Route: 048
     Dates: start: 20081130, end: 20081130
  2. ALEVE (CAPLET) [Suspect]
     Route: 048

REACTIONS (12)
  - BURNING SENSATION [None]
  - ERYTHEMA [None]
  - FLUSHING [None]
  - HYPOAESTHESIA [None]
  - NEURALGIA [None]
  - OEDEMA PERIPHERAL [None]
  - PAIN [None]
  - PAIN IN EXTREMITY [None]
  - PRURITUS [None]
  - SKIN CHAPPED [None]
  - SWELLING [None]
  - URTICARIA [None]
